FAERS Safety Report 4817788-8 (Version None)
Quarter: 2005Q3

REPORT INFORMATION
  Report Type: 
  Country: None (occurrence: None)
  Receive Date: 20050929
  Receipt Date: 20050809
  Transmission Date: 20060218
  Serious: No
  Sender: FDA-Public Use
  Company Number: 05P-163-0307957-00

PATIENT
  Age: 30 Year
  Sex: Female
  Weight: 49.4421 kg

DRUGS (4)
  1. HUMIRA [Suspect]
     Indication: RHEUMATOID ARTHRITIS
     Dosage: 40 MG, 1 IN 2 WK, SUBCUTANEOUS
     Route: 058
     Dates: start: 20050401, end: 20050701
  2. HUMIRA [Suspect]
     Indication: RHEUMATOID ARTHRITIS
     Dosage: 40 MG, 1 IN 2 WK, SUBCUTANEOUS
     Route: 058
     Dates: start: 20050801
  3. LEVOTHYROXINE SODIUM [Concomitant]
  4. MORPHINE [Concomitant]

REACTIONS (6)
  - BLOOD BLISTER [None]
  - CYST [None]
  - INFLUENZA LIKE ILLNESS [None]
  - NODULE ON EXTREMITY [None]
  - RHEUMATOID ARTHRITIS [None]
  - UPPER RESPIRATORY TRACT INFECTION [None]
